FAERS Safety Report 20780009 (Version 1)
Quarter: 2022Q2

REPORT INFORMATION
  Report Type: Spontaneous
  Country: US (occurrence: US)
  Receive Date: 20220503
  Receipt Date: 20220503
  Transmission Date: 20220720
  Serious: Yes (Hospitalization, Other)
  Sender: FDA-Public Use
  Company Number: US-FRESENIUS KABI-FK202205060

PATIENT
  Age: 3 Month
  Sex: Male

DRUGS (3)
  1. SMOFLIPID [Suspect]
     Active Substance: FISH OIL\MEDIUM-CHAIN TRIGLYCERIDES\OLIVE OIL\SOYBEAN OIL
     Indication: Parenteral nutrition
     Dosage: UPON ADMISSION: 60 ML OVER 24HRS (2.1G/KG/DAY). TOTAL CALORIES: 83KCAL/KG/DAY.
     Route: 065
  2. DEXTROSE [Concomitant]
     Active Substance: DEXTROSE
     Indication: Parenteral nutrition
     Dosage: UPON ADMISSION: 157 G/L (GIR [GLUCOSE INFUSION RATE]: 10.4MG/KG/MIN)
     Route: 065
  3. AMINO ACIDS, SOURCE UNSPECIFIED [Concomitant]
     Active Substance: AMINO ACIDS, SOURCE UNSPECIFIED
     Indication: Parenteral nutrition
     Dosage: UPON ADMISSION: 30 G/L (2.9G/KG/DAY)
     Route: 065

REACTIONS (4)
  - Pneumonia [Unknown]
  - Vascular device infection [Unknown]
  - Cholestasis [Unknown]
  - Off label use [Unknown]
